FAERS Safety Report 18612256 (Version 2)
Quarter: 2020Q4

REPORT INFORMATION
  Report Type: Spontaneous
  Country: TH (occurrence: TH)
  Receive Date: 20201214
  Receipt Date: 20201228
  Transmission Date: 20210114
  Serious: Yes (Hospitalization)
  Sender: FDA-Public Use
  Company Number: TH-BAYER-2020-266534

PATIENT
  Age: 61 Year
  Sex: Male

DRUGS (1)
  1. STIVARGA [Suspect]
     Active Substance: REGORAFENIB
     Dosage: 80 MG, QD
     Dates: start: 20201127, end: 20201203

REACTIONS (3)
  - Lipase increased [Recovered/Resolved]
  - Abdominal pain [Recovered/Resolved]
  - Pancreatitis [Recovered/Resolved]

NARRATIVE: CASE EVENT DATE: 20201130
